FAERS Safety Report 9153939 (Version 1)
Quarter: 2013Q1

REPORT INFORMATION
  Report Type: Spontaneous
  Country: US (occurrence: US)
  Receive Date: 20130311
  Receipt Date: 20130311
  Transmission Date: 20140127
  Serious: Yes (Hospitalization)
  Sender: FDA-Public Use
  Company Number: US-DX529-2013DX000043

PATIENT
  Age: 55 None
  Sex: Female
  Weight: 90.72 kg

DRUGS (11)
  1. KALBITOR [Suspect]
     Indication: HEREDITARY ANGIOEDEMA
     Route: 058
     Dates: start: 20130226, end: 20130226
  2. KALBITOR [Suspect]
     Indication: HEREDITARY ANGIOEDEMA
     Route: 058
     Dates: start: 201107
  3. KALBITOR [Suspect]
     Indication: HEREDITARY ANGIOEDEMA
     Route: 058
     Dates: start: 20130226, end: 20130226
  4. KALBITOR [Suspect]
     Indication: HEREDITARY ANGIOEDEMA
     Route: 058
     Dates: start: 20130227, end: 20130227
  5. WELCHOL [Concomitant]
     Indication: BLOOD CHOLESTEROL
     Route: 048
  6. BYSTOLIC [Concomitant]
     Indication: BLOOD PRESSURE
     Route: 048
  7. EPIPEN [Concomitant]
     Indication: PRODUCT USED FOR UNKNOWN INDICATION
     Route: 058
  8. XANAX [Concomitant]
     Indication: ANXIETY
     Route: 048
     Dates: start: 2010
  9. HUMALOG [Concomitant]
     Indication: DIABETES MELLITUS
     Route: 058
     Dates: start: 201209
  10. NITROSTAT [Concomitant]
     Indication: ANGINA UNSTABLE
  11. ADDERALL [Concomitant]
     Indication: ATTENTION DEFICIT/HYPERACTIVITY DISORDER
     Route: 048

REACTIONS (2)
  - Dehydration [Recovered/Resolved]
  - Hereditary angioedema [Recovered/Resolved]
